FAERS Safety Report 6654716-7 (Version None)
Quarter: 2010Q1

REPORT INFORMATION
  Report Type: 
  Country: None (occurrence: None)
  Receive Date: 20100326
  Receipt Date: 20100316
  Transmission Date: 20100710
  Serious: Yes (Other)
  Sender: FDA-Public Use
  Company Number: US-ABBOTT-10P-163-0632700-00

PATIENT
  Sex: Female
  Weight: 158.9 kg

DRUGS (5)
  1. HUMIRA [Suspect]
     Indication: PSORIASIS
     Route: 058
     Dates: start: 20090101
  2. STARLIX [Concomitant]
     Indication: DIABETES MELLITUS
  3. FUROSEMIDE [Concomitant]
     Indication: HYPERTENSION
  4. LISINOPRIL [Concomitant]
     Indication: HYPERTENSION
  5. CLONIDINE [Concomitant]
     Indication: HYPERTENSION

REACTIONS (2)
  - MENISCUS LESION [None]
  - ROTATOR CUFF SYNDROME [None]
